FAERS Safety Report 10191180 (Version 3)
Quarter: 2014Q2

REPORT INFORMATION
  Report Type: Report from Study
  Country: TH (occurrence: TH)
  Receive Date: 20140523
  Receipt Date: 20140611
  Transmission Date: 20141212
  Serious: Yes (Other)
  Sender: FDA-Public Use
  Company Number: TH-PFIZER INC-2014127360

PATIENT
  Age: 51 Year
  Sex: Female
  Weight: 59 kg

DRUGS (4)
  1. TOFACITINIB CITRATE [Suspect]
     Indication: RHEUMATOID ARTHRITIS
     Dosage: 10 MG, 2X/DAY
     Route: 048
     Dates: start: 20130103, end: 20140331
  2. METHOTREXATE SODIUM [Suspect]
     Indication: RHEUMATOID ARTHRITIS
     Dosage: 20 MG, WEEKLY
     Route: 048
     Dates: start: 20130103, end: 20130318
  3. METHOTREXATE SODIUM [Suspect]
     Dosage: 17.5 MG, WEEKLY
     Route: 048
     Dates: start: 20130319, end: 20140326
  4. METHOTREXATE SODIUM [Suspect]
     Dosage: 15 MG, WEEKLY
     Route: 048
     Dates: start: 20140327, end: 20140331

REACTIONS (1)
  - Hepatitis B [Recovering/Resolving]
